FAERS Safety Report 15005309 (Version 1)
Quarter: 2018Q2

REPORT INFORMATION
  Report Type: Report from Study
  Country: IE (occurrence: IE)
  Receive Date: 20180613
  Receipt Date: 20180613
  Transmission Date: 20180711
  Serious: Yes (Other)
  Sender: FDA-Public Use
  Company Number: IE-ACCORD-068012

PATIENT
  Age: 44 Year
  Sex: Female

DRUGS (9)
  1. VIMOVO [Concomitant]
     Active Substance: ESOMEPRAZOLE MAGNESIUM\NAPROXEN
     Dosage: UNK UNK, PRN
  2. COSENTYX [Suspect]
     Active Substance: SECUKINUMAB
     Indication: PSORIASIS
     Dosage: 300 MG, QMO
     Route: 058
  3. FOLIC ACID. [Concomitant]
     Active Substance: FOLIC ACID
     Dosage: 400 MG, 3 TIMES A WEEK
  4. METHOTREXATE. [Suspect]
     Active Substance: METHOTREXATE
     Indication: NEURODERMATITIS
     Dosage: 10 MG, QW
     Route: 065
  5. ETANERCEPT [Concomitant]
     Active Substance: ETANERCEPT
  6. ADALIMUMAB [Concomitant]
     Active Substance: ADALIMUMAB
  7. METOJECT [Concomitant]
     Active Substance: METHOTREXATE SODIUM
     Dosage: UNK
     Route: 058
  8. CYMBALTA [Concomitant]
     Active Substance: DULOXETINE HYDROCHLORIDE
  9. TETRALYSAL [Concomitant]
     Active Substance: LYMECYCLINE

REACTIONS (7)
  - Hepatic steatosis [Unknown]
  - Drug effect decreased [Unknown]
  - Condition aggravated [Unknown]
  - Neurodermatitis [Unknown]
  - Lower respiratory tract infection [Recovered/Resolved]
  - Gastrointestinal disorder [Unknown]
  - Body mass index increased [Unknown]

NARRATIVE: CASE EVENT DATE: 201709
